FAERS Safety Report 18415591 (Version 1)
Quarter: 2020Q4

REPORT INFORMATION
  Report Type: Spontaneous
  Country: KR (occurrence: KR)
  Receive Date: 20201022
  Receipt Date: 20201022
  Transmission Date: 20210114
  Serious: Yes (Other)
  Sender: FDA-Public Use
  Company Number: KR-ASTRAZENECA-2020SF34208

PATIENT
  Age: 62 Year
  Sex: Male

DRUGS (1)
  1. IMFINZI [Suspect]
     Active Substance: DURVALUMAB
     Indication: NON-SMALL CELL LUNG CANCER
     Dosage: 620.0MG UNKNOWN
     Route: 042
     Dates: start: 20200523, end: 20200806

REACTIONS (1)
  - Metastases to kidney [Unknown]

NARRATIVE: CASE EVENT DATE: 2020
